FAERS Safety Report 4602456-8 (Version None)
Quarter: 2005Q1

REPORT INFORMATION
  Report Type: 
  Country: None (occurrence: None)
  Receive Date: 20050309
  Receipt Date: 20050228
  Transmission Date: 20050727
  Serious: Yes (Death)
  Sender: FDA-Public Use
  Company Number: JP-JNJFOC-20050204694

PATIENT
  Sex: Male

DRUGS (10)
  1. RISPERDAL [Suspect]
     Route: 049
  2. RISPERDAL [Suspect]
     Route: 049
  3. RISPERDAL [Suspect]
     Route: 049
  4. RISPERDAL [Suspect]
     Indication: SCHIZOPHRENIA
     Route: 049
  5. NITRAZEPAM [Concomitant]
     Indication: SCHIZOPHRENIA
     Route: 049
  6. BROTIZOLAM [Concomitant]
     Indication: SCHIZOPHRENIA
     Route: 049
  7. MAGNESIUM OXIDE [Concomitant]
     Indication: ILEUS PARALYTIC
     Route: 049
  8. SENNOSIDE [Concomitant]
     Indication: ILEUS PARALYTIC
  9. MOSAPRIDE CITRATE [Concomitant]
     Indication: ILEUS PARALYTIC
  10. PANTETHINE [Concomitant]
     Indication: ILEUS PARALYTIC

REACTIONS (6)
  - BRADYKINESIA [None]
  - HYPOTHERMIA [None]
  - LIVER DISORDER [None]
  - MALNUTRITION [None]
  - OBSTRUCTIVE AIRWAYS DISORDER [None]
  - URINARY TRACT INFECTION [None]
